FAERS Safety Report 10375666 (Version 2)
Quarter: 2014Q3

REPORT INFORMATION
  Report Type: Report from Study
  Country: US (occurrence: US)
  Receive Date: 20140811
  Receipt Date: 20140811
  Transmission Date: 20150326
  Serious: Yes (Hospitalization)
  Sender: FDA-Public Use
  Company Number: US-BAYER-2014-112289

PATIENT
  Age: 65 Year
  Sex: Female

DRUGS (2)
  1. STIVARGA [Suspect]
     Active Substance: REGORAFENIB
     Indication: COLON CANCER
     Dosage: 160 MG, QD 21 OUT OF 28 DAYS
     Route: 048
     Dates: start: 20140723
  2. STIVARGA [Suspect]
     Active Substance: REGORAFENIB
     Indication: COLON CANCER
     Dosage: 160 MG, QD 21 OUT OF 28 DAYS
     Route: 048
     Dates: start: 20140718, end: 20140727

REACTIONS (2)
  - Urinary tract infection [None]
  - Dyspnoea [None]

NARRATIVE: CASE EVENT DATE: 20140719
